FAERS Safety Report 12267896 (Version 1)
Quarter: 2016Q2

REPORT INFORMATION
  Report Type: Spontaneous
  Country: GB (occurrence: GB)
  Receive Date: 20160414
  Receipt Date: 20160414
  Transmission Date: 20160815
  Serious: Yes (Hospitalization)
  Sender: FDA-Public Use
  Company Number: GB-PFIZER INC-2016196180

PATIENT
  Age: 60 Year

DRUGS (1)
  1. ATORVASTATIN CALCIUM. [Suspect]
     Active Substance: ATORVASTATIN CALCIUM
     Dosage: 20 MG, UNK
     Route: 048
     Dates: start: 20160302

REACTIONS (4)
  - Nausea [Unknown]
  - Hepatocellular injury [Unknown]
  - Chromaturia [Unknown]
  - Vomiting [Unknown]

NARRATIVE: CASE EVENT DATE: 20160323
